FAERS Safety Report 14968700 (Version 2)
Quarter: 2018Q3

REPORT INFORMATION
  Report Type: Spontaneous
  Country: US (occurrence: US)
  Receive Date: 20180604
  Receipt Date: 20180711
  Transmission Date: 20181010
  Serious: No
  Sender: FDA-Public Use
  Company Number: US-LEXICON PHARMACEUTICALS, INC-18-1606-00659

PATIENT
  Sex: Male

DRUGS (2)
  1. SANDOSTATIN [Concomitant]
     Active Substance: OCTREOTIDE ACETATE
     Dates: start: 2012
  2. TELOTRISTAT ETHYL [Suspect]
     Active Substance: TELOTRISTAT ETHYL
     Indication: CARCINOID SYNDROME
     Route: 048
     Dates: start: 20180331

REACTIONS (1)
  - Seasonal allergy [Unknown]

NARRATIVE: CASE EVENT DATE: 2018
